FAERS Safety Report 18105929 (Version 1)
Quarter: 2020Q3

REPORT INFORMATION
  Report Type: Spontaneous
  Country: US (occurrence: US)
  Receive Date: 20200804
  Receipt Date: 20200804
  Transmission Date: 20201103
  Serious: Yes (Congenital Anomaly, Other)
  Sender: FDA-Public Use
  Company Number: US-SA-2020SA197298

PATIENT

DRUGS (1)
  1. ZANTAC [Suspect]
     Active Substance: RANITIDINE HYDROCHLORIDE
     Dosage: UNK UNK UNK
     Route: 065
     Dates: start: 201401, end: 201911

REACTIONS (2)
  - Congenital anomaly [Unknown]
  - Bladder cancer [Unknown]

NARRATIVE: CASE EVENT DATE: 201506
